FAERS Safety Report 6456244-0 (Version None)
Quarter: 2009Q4

REPORT INFORMATION
  Report Type: 
  Country: None (occurrence: None)
  Receive Date: 20091125
  Receipt Date: 20091123
  Transmission Date: 20100525
  Serious: Yes (Other)
  Sender: FDA-Public Use
  Company Number: GB-ROCHE-660776

PATIENT
  Sex: Female
  Weight: 19.5 kg

DRUGS (2)
  1. TAMIFLU [Suspect]
     Indication: H1N1 INFLUENZA
     Route: 065
  2. TAMIFLU [Suspect]
     Route: 065
     Dates: start: 20091003, end: 20091006

REACTIONS (1)
  - PALPITATIONS [None]
